FAERS Safety Report 6263489-1 (Version None)
Quarter: 2009Q3

REPORT INFORMATION
  Report Type: 
  Country: None (occurrence: None)
  Receive Date: 20090710
  Receipt Date: 20090326
  Transmission Date: 20100115
  Serious: No
  Sender: FDA-Public Use
  Company Number: A0770691A

PATIENT
  Age: 60 Year
  Sex: Female

DRUGS (9)
  1. TYKERB [Suspect]
     Indication: BREAST CANCER
     Dosage: 1250MG PER DAY
     Route: 048
     Dates: start: 20090219
  2. LIPITOR [Concomitant]
  3. NEXIUM [Concomitant]
  4. COUMADIN [Concomitant]
  5. ASPIRIN [Concomitant]
  6. LASIX [Concomitant]
  7. FISH OIL [Concomitant]
  8. VITAMINS [Concomitant]
  9. CALCIUM [Concomitant]

REACTIONS (4)
  - BLISTER [None]
  - DIARRHOEA [None]
  - GASTROOESOPHAGEAL REFLUX DISEASE [None]
  - PRURITUS [None]
